FAERS Safety Report 17069906 (Version 1)
Quarter: 2019Q4

REPORT INFORMATION
  Report Type: Spontaneous
  Country: US (occurrence: US)
  Receive Date: 20191025
  Receipt Date: 20191025
  Transmission Date: 20200122
  Serious: No
  Sender: FDA-Public Use
  Company Number: None

PATIENT
  Sex: Male

DRUGS (2)
  1. VANCOMYCIN HCL 500 MG HOSPIRA [Suspect]
     Active Substance: VANCOMYCIN HYDROCHLORIDE
     Indication: GRANULOMA
     Route: 042
     Dates: start: 20191004, end: 20191014
  2. VANCOMYCIN HCL 500 MG HOSPIRA [Suspect]
     Active Substance: VANCOMYCIN HYDROCHLORIDE
     Indication: BRAIN ABSCESS
     Route: 042
     Dates: start: 20191004, end: 20191014

REACTIONS (1)
  - Tinnitus [None]
